FAERS Safety Report 12653230 (Version 2)
Quarter: 2016Q3

REPORT INFORMATION
  Report Type: Spontaneous
  Country: US (occurrence: US)
  Receive Date: 20160815
  Receipt Date: 20160916
  Transmission Date: 20161109
  Serious: Yes (Other)
  Sender: FDA-Public Use
  Company Number: US-BAUSCH-BL-2016-019173

PATIENT
  Age: 68 Year
  Sex: Female
  Weight: 74.91 kg

DRUGS (1)
  1. MURO 128 [Suspect]
     Active Substance: SODIUM CHLORIDE
     Indication: POSTOPERATIVE CARE
     Dosage: LEFT EYE
     Route: 047
     Dates: start: 2011

REACTIONS (7)
  - Skin irritation [Not Recovered/Not Resolved]
  - Vision blurred [Unknown]
  - Breast cancer [Unknown]
  - Surgery [Unknown]
  - Erythema [Not Recovered/Not Resolved]
  - Skin exfoliation [Not Recovered/Not Resolved]
  - Lacrimation increased [Unknown]

NARRATIVE: CASE EVENT DATE: 2011
